FAERS Safety Report 13765330 (Version 1)
Quarter: 2017Q3

REPORT INFORMATION
  Report Type: Report from Study
  Country: US (occurrence: US)
  Receive Date: 20170718
  Receipt Date: 20170718
  Transmission Date: 20171127
  Serious: Yes (Hospitalization)
  Sender: FDA-Public Use
  Company Number: US-MALLINCKRODT-T201702851

PATIENT
  Sex: Female
  Weight: 59 kg

DRUGS (1)
  1. REPOSITORY CORTICOTROPIN INJECTION [Suspect]
     Active Substance: CORTICOTROPIN
     Indication: MULTIPLE SCLEROSIS
     Dosage: 80 UNIT/ML, ONCE DAILY
     Dates: start: 20170628, end: 20170704

REACTIONS (5)
  - Chest pain [Unknown]
  - Sleep terror [Unknown]
  - Gastritis [Unknown]
  - Blood pressure increased [Unknown]
  - Mood swings [Unknown]
